FAERS Safety Report 10749377 (Version 1)
Quarter: 2015Q1

REPORT INFORMATION
  Report Type: Report from Study
  Country: AT (occurrence: AT)
  Receive Date: 20150129
  Receipt Date: 20150129
  Transmission Date: 20150721
  Serious: Yes (Other)
  Sender: FDA-Public Use
  Company Number: AT-SA-2015SA011096

PATIENT

DRUGS (7)
  1. ONDANSETRON [Concomitant]
     Active Substance: ONDANSETRON
  2. OXALIPLATIN. [Suspect]
     Active Substance: OXALIPLATIN
     Indication: PANCREATIC CARCINOMA METASTATIC
     Dosage: DILUTED IN 500ML 5% GLUCOSE ADMINISTERED AS A 120 MIN INFUSION ON DAY 1, REPEATED EVERY 2 WEEKS
     Route: 065
  3. SALINE [Concomitant]
     Active Substance: SODIUM CHLORIDE
     Dosage: ADMINSTERED AS A 100 MININTRAVENOUS INFUSION.
     Route: 042
  4. DEXAMETHASONE. [Concomitant]
     Active Substance: DEXAMETHASONE
  5. GEMCITABINE [Suspect]
     Active Substance: GEMCITABINE\GEMCITABINE HYDROCHLORIDE
     Indication: PANCREATIC CARCINOMA METASTATIC
     Dosage: DILUTED IN 250ML SALINE ADMINISTERED AS A 100 MIN INTRAVENOUS INFUSION
     Route: 042
  6. ERLOTINIB [Suspect]
     Active Substance: ERLOTINIB
     Indication: PANCREATIC CARCINOMA METASTATIC
     Dosage: FROM DAY 1.
     Route: 048
  7. GLUCOSE [Concomitant]
     Active Substance: DEXTROSE
     Dosage: 5 % GLUCOSE ADMINISTERED AS A 120 MINUTE INFUSION ON DAY 1

REACTIONS (1)
  - Cystitis haemorrhagic [Unknown]
